FAERS Safety Report 13719795 (Version 1)
Quarter: 2017Q3

REPORT INFORMATION
  Report Type: Spontaneous
  Country: US (occurrence: US)
  Receive Date: 20170705
  Receipt Date: 20170705
  Transmission Date: 20171127
  Serious: Yes (Hospitalization)
  Sender: FDA-Public Use
  Company Number: US-LUNDBECK-DKLU2028210

PATIENT
  Age: 6 Year
  Sex: Male
  Weight: 21 kg

DRUGS (13)
  1. SABRIL [Suspect]
     Active Substance: VIGABATRIN
     Indication: INFANTILE SPASMS
     Route: 048
     Dates: start: 201104
  2. TOPIRAMATE. [Concomitant]
     Active Substance: TOPIRAMATE
     Indication: PRODUCT USED FOR UNKNOWN INDICATION
     Route: 065
  3. SABRIL [Suspect]
     Active Substance: VIGABATRIN
     Indication: EPILEPSY
  4. SABRIL [Suspect]
     Active Substance: VIGABATRIN
     Indication: STATUS EPILEPTICUS
  5. MIRALAX [Concomitant]
     Active Substance: POLYETHYLENE GLYCOL 3350
     Indication: PRODUCT USED FOR UNKNOWN INDICATION
     Dosage: HOLD FOR DIARRHEA
     Route: 048
  6. Q-PAP [Concomitant]
     Active Substance: ACETAMINOPHEN
     Indication: PRODUCT USED FOR UNKNOWN INDICATION
     Route: 048
  7. OMEPRAZOLE. [Concomitant]
     Active Substance: OMEPRAZOLE
     Indication: PRODUCT USED FOR UNKNOWN INDICATION
     Route: 048
  8. FERROUS SULFATE. [Concomitant]
     Active Substance: FERROUS SULFATE
     Indication: PRODUCT USED FOR UNKNOWN INDICATION
     Route: 065
  9. CALCIUM/VITAMIN D [Concomitant]
     Active Substance: CALCIUM\VITAMIN D
     Indication: PRODUCT USED FOR UNKNOWN INDICATION
     Dosage: 500MG/400IU
     Route: 048
  10. CARNITOR [Concomitant]
     Active Substance: LEVOCARNITINE
     Indication: PRODUCT USED FOR UNKNOWN INDICATION
     Route: 048
  11. SABRIL [Suspect]
     Active Substance: VIGABATRIN
     Indication: EPILEPSY
  12. DIASTAT ACUDIAL [Concomitant]
     Active Substance: DIAZEPAM
     Indication: SEIZURE
     Dosage: 5-7.5-10 MG KIT
     Route: 054
  13. FERROUS SULFATE. [Concomitant]
     Active Substance: FERROUS SULFATE
     Indication: PRODUCT USED FOR UNKNOWN INDICATION
     Route: 048

REACTIONS (5)
  - Tonic posturing [Recovering/Resolving]
  - Vomiting [Recovering/Resolving]
  - Generalised tonic-clonic seizure [Recovering/Resolving]
  - Seizure [Recovering/Resolving]
  - Pneumonia aspiration [Recovering/Resolving]

NARRATIVE: CASE EVENT DATE: 20170220
